FAERS Safety Report 8613595-9 (Version None)
Quarter: 2012Q3

REPORT INFORMATION
  Report Type: 
  Country: None (occurrence: None)
  Receive Date: 20120823
  Receipt Date: 20120328
  Transmission Date: 20120928
  Serious: Yes (Other)
  Sender: FDA-Public Use
  Company Number: JP-009507513-1110USA04582

PATIENT

DRUGS (7)
  1. BETAMETHASONE SODIUM PHOSPHATE [Concomitant]
     Dates: start: 20100331, end: 20100529
  2. FLUOROMETHOLONE [Concomitant]
     Dates: start: 20100529, end: 20101008
  3. ZIOPTAN [Suspect]
     Dosage: 1 DROP, QD
     Route: 047
     Dates: start: 20100403, end: 20101008
  4. BROMFENAC SODIUM [Concomitant]
     Dates: start: 20100331, end: 20101008
  5. ZIOPTAN [Suspect]
     Indication: NORMAL TENSION GLAUCOMA
     Dosage: 1 DROP, QD
     Route: 047
     Dates: start: 20090501, end: 20100330
  6. CARTEOLOL HYDROCHLORIDE [Concomitant]
     Dates: start: 20071004, end: 20100330
  7. LEVOFLOXACIN [Concomitant]
     Dates: start: 20100331, end: 20101008

REACTIONS (2)
  - BLEPHARAL PIGMENTATION [None]
  - CATARACT [None]
